FAERS Safety Report 23353225 (Version 2)
Quarter: 2024Q1

REPORT INFORMATION
  Report Type: Spontaneous
  Country: JP (occurrence: JP)
  Receive Date: 20231230
  Receipt Date: 20240127
  Transmission Date: 20240409
  Serious: No
  Sender: FDA-Public Use
  Company Number: JP-AMGEN-JPNSP2023231181

PATIENT
  Sex: Male

DRUGS (1)
  1. REPATHA [Suspect]
     Active Substance: EVOLOCUMAB
     Indication: Product used for unknown indication
     Dosage: 140 MILLIGRAM, Q2WK
     Route: 058

REACTIONS (2)
  - Administration site bruise [Recovered/Resolved]
  - Injection site mass [Recovered/Resolved]
